FAERS Safety Report 9556227 (Version 1)
Quarter: 2013Q3

REPORT INFORMATION
  Report Type: Spontaneous
  Country: CH (occurrence: None)
  Receive Date: 20130830
  Receipt Date: 20130830
  Transmission Date: 20140515
  Serious: Yes (Hospitalization)
  Sender: FDA-Public Use
  Company Number: AMAG201300092

PATIENT
  Age: 19 Year
  Sex: Female

DRUGS (1)
  1. RIENSO [Suspect]
     Indication: IRON DEFICIENCY ANAEMIA
     Route: 042
     Dates: start: 20130412, end: 20130412

REACTIONS (6)
  - Anaphylactic shock [None]
  - Dyspnoea [None]
  - Hypotension [None]
  - Tachycardia [None]
  - Feeling hot [None]
  - Malaise [None]
